FAERS Safety Report 11733934 (Version 1)
Quarter: 2015Q4

REPORT INFORMATION
  Report Type: Spontaneous
  Country: US (occurrence: None)
  Receive Date: 20151112
  Receipt Date: 20151112
  Transmission Date: 20160304
  Serious: Yes (Other)
  Sender: FDA-Public Use
  Company Number: None

PATIENT
  Age: 39 Year
  Sex: Male

DRUGS (1)
  1. HUMIRA [Suspect]
     Active Substance: ADALIMUMAB
     Indication: PSORIASIS
     Dosage: VARIES
     Route: 058
     Dates: start: 20151023

REACTIONS (3)
  - Thirst [None]
  - Nausea [None]
  - Pain [None]

NARRATIVE: CASE EVENT DATE: 20151023
